FAERS Safety Report 7276284-1 (Version None)
Quarter: 2011Q1

REPORT INFORMATION
  Report Type: 
  Country: None (occurrence: None)
  Receive Date: 20110204
  Receipt Date: 20101123
  Transmission Date: 20110831
  Serious: No
  Sender: FDA-Public Use
  Company Number: US-BAYER-2011-005591

PATIENT
  Sex: Female
  Weight: 55.782 kg

DRUGS (3)
  1. ALEVE (CAPLET) [Suspect]
     Dosage: 1 DF, ONCE
     Route: 048
     Dates: start: 20101122
  2. PROZAC [Concomitant]
  3. RISPERIDONE [Concomitant]

REACTIONS (5)
  - GINGIVAL DISORDER [None]
  - MUSCLE CONTRACTIONS INVOLUNTARY [None]
  - SOMNOLENCE [None]
  - GINGIVAL PAIN [None]
  - THROAT IRRITATION [None]
